FAERS Safety Report 23776175 (Version 1)
Quarter: 2024Q2

REPORT INFORMATION
  Report Type: Spontaneous
  Country: US (occurrence: US)
  Receive Date: 20240424
  Receipt Date: 20240424
  Transmission Date: 20240715
  Serious: Yes (Life-Threatening, Hospitalization)
  Sender: FDA-Public Use
  Company Number: US-STRIDES ARCOLAB LIMITED-2024SP004663

PATIENT
  Age: 81 Year
  Sex: Male

DRUGS (4)
  1. TACROLIMUS [Interacting]
     Active Substance: TACROLIMUS
     Indication: Lung transplant
     Dosage: UNK
     Route: 065
  2. TACROLIMUS [Interacting]
     Active Substance: TACROLIMUS
     Indication: Immunosuppressant drug therapy
  3. PAXLOVID [Interacting]
     Active Substance: NIRMATRELVIR\RITONAVIR
     Indication: COVID-19
     Dosage: UNK
     Route: 065
  4. TAMIFLU [Concomitant]
     Active Substance: OSELTAMIVIR PHOSPHATE
     Indication: COVID-19
     Dosage: UNK
     Route: 065

REACTIONS (15)
  - Fatigue [Unknown]
  - Hypophagia [Unknown]
  - Hypoxia [Unknown]
  - Lactic acidosis [Unknown]
  - Liver injury [Unknown]
  - Ischaemic hepatitis [Unknown]
  - Multiple organ dysfunction syndrome [Recovered/Resolved]
  - Acute kidney injury [Unknown]
  - Drug interaction [Unknown]
  - COVID-19 [Unknown]
  - Immunosuppressant drug level increased [Unknown]
  - Hypotension [Unknown]
  - Dyspnoea [Unknown]
  - Septic shock [Unknown]
  - Toxicity to various agents [Unknown]
